FAERS Safety Report 5869264-1 (Version None)
Quarter: 2008Q3

REPORT INFORMATION
  Report Type: 
  Country: None (occurrence: None)
  Receive Date: 20080903
  Receipt Date: 20080827
  Transmission Date: 20090109
  Serious: Yes (Other)
  Sender: FDA-Public Use
  Company Number: AT-ABBOTT-07P-009-0425272-00

PATIENT
  Sex: Male
  Weight: 83 kg

DRUGS (4)
  1. HUMIRA [Suspect]
     Indication: ANKYLOSING SPONDYLITIS
     Route: 058
     Dates: start: 20061101, end: 20071022
  2. HUMIRA [Suspect]
  3. HUMIRA [Suspect]
     Indication: ARTHROPATHY
  4. METHOTREXATE SODIUM [Concomitant]
     Indication: DRUG USE FOR UNKNOWN INDICATION

REACTIONS (3)
  - LOOSE TOOTH [None]
  - PERIODONTITIS [None]
  - TOOTHACHE [None]
